FAERS Safety Report 12454491 (Version 1)
Quarter: 2016Q2

REPORT INFORMATION
  Report Type: Spontaneous
  Country: US (occurrence: None)
  Receive Date: 20160609
  Receipt Date: 20160609
  Transmission Date: 20160815
  Serious: Yes (Disabling)
  Sender: FDA-Public Use
  Company Number: None

PATIENT
  Sex: Male
  Weight: 90.72 kg

DRUGS (7)
  1. ATENOLOL. [Concomitant]
     Active Substance: ATENOLOL
  2. MAGNESIUM GLYCINATE [Concomitant]
     Active Substance: MAGNESIUM GLYCINATE
  3. CURCUMIN [Concomitant]
     Active Substance: CURCUMIN
  4. CIPROFLOXACIN HCL 500MG [Suspect]
     Active Substance: CIPROFLOXACIN HYDROCHLORIDE
     Indication: CYSTITIS
  5. MELATONIN [Concomitant]
     Active Substance: MELATONIN
  6. INDAPAMIDE. [Concomitant]
     Active Substance: INDAPAMIDE
  7. POTASSIUM CITRATE. [Concomitant]
     Active Substance: POTASSIUM CITRATE

REACTIONS (13)
  - Pain [None]
  - Nerve injury [None]
  - Muscle injury [None]
  - Myalgia [None]
  - Bone pain [None]
  - Asthenia [None]
  - Balance disorder [None]
  - Shock [None]
  - Hallucination [None]
  - Nail discolouration [None]
  - Rotator cuff syndrome [None]
  - Neuralgia [None]
  - Formication [None]
